FAERS Safety Report 16288574 (Version 1)
Quarter: 2019Q2

REPORT INFORMATION
  Report Type: Report from Study
  Country: None (occurrence: TR)
  Receive Date: 20190509
  Receipt Date: 20190509
  Transmission Date: 20190711
  Serious: Yes (Hospitalization)
  Sender: FDA-Public Use
  Company Number: TR-ABBVIE-19S-161-2774388-00

PATIENT
  Sex: Female
  Weight: 70 kg

DRUGS (2)
  1. DUODOPA [Suspect]
     Active Substance: CARBIDOPA\LEVODOPA
     Dosage: MD(ML):0.00;CD(ML):3.30;ED(ML):1.50
     Route: 050
     Dates: start: 20190507
  2. DUODOPA [Suspect]
     Active Substance: CARBIDOPA\LEVODOPA
     Indication: PARKINSON^S DISEASE
     Dosage: MD(ML):0.00;CD(ML):3.60;ED(ML):1.50
     Route: 050
     Dates: start: 20181217, end: 20190507

REACTIONS (3)
  - Dysphagia [Not Recovered/Not Resolved]
  - Bradykinesia [Not Recovered/Not Resolved]
  - Speech disorder [Not Recovered/Not Resolved]
